FAERS Safety Report 14517769 (Version 1)
Quarter: 2018Q1

REPORT INFORMATION
  Report Type: Spontaneous
  Country: US (occurrence: US)
  Receive Date: 20180209
  Receipt Date: 20180209
  Transmission Date: 20180509
  Serious: Yes (Hospitalization)
  Sender: FDA-Public Use
  Company Number: None

PATIENT
  Age: 72 Year
  Sex: Female
  Weight: 82.1 kg

DRUGS (3)
  1. TAXOL [Suspect]
     Active Substance: PACLITAXEL
     Dates: end: 20180122
  2. CYCLOPHOSPHAMIDE. [Suspect]
     Active Substance: CYCLOPHOSPHAMIDE
     Dates: end: 20171204
  3. DOXORUBICIN HYDROCHLORIDE. [Suspect]
     Active Substance: DOXORUBICIN HYDROCHLORIDE
     Dates: end: 20171204

REACTIONS (6)
  - Diastolic dysfunction [None]
  - Hypotension [None]
  - Sinus tachycardia [None]
  - Neuropathy peripheral [None]
  - Nuclear magnetic resonance imaging brain abnormal [None]
  - Syncope [None]

NARRATIVE: CASE EVENT DATE: 20180126
